FAERS Safety Report 5026337-3 (Version None)
Quarter: 2006Q2

REPORT INFORMATION
  Report Type: 
  Country: None (occurrence: None)
  Receive Date: 20060608
  Receipt Date: 20060523
  Transmission Date: 20061013
  Serious: Yes (Hospitalization)
  Sender: FDA-Public Use
  Company Number: GB200604004635

PATIENT
  Age: 44 Year
  Sex: Female
  Weight: 127 kg

DRUGS (1)
  1. OLANZAPINE [Suspect]
     Dosage: 20 MG, ORAL
     Route: 048
     Dates: start: 20020101

REACTIONS (4)
  - ANXIETY [None]
  - BINGE EATING [None]
  - PERSONALITY DISORDER [None]
  - THINKING ABNORMAL [None]
